FAERS Safety Report 6838885-1 (Version None)
Quarter: 2010Q3

REPORT INFORMATION
  Report Type: 
  Country: None (occurrence: None)
  Receive Date: 20100713
  Receipt Date: 20070801
  Transmission Date: 20110219
  Serious: Yes (Other)
  Sender: FDA-Public Use
  Company Number: US-PFIZER INC-2007042854

PATIENT
  Age: 52 Year
  Sex: Male
  Weight: 96.4 kg

DRUGS (6)
  1. CHANTIX [Suspect]
     Indication: SMOKING CESSATION THERAPY
     Dosage: DAILY
     Dates: start: 20070516
  2. VICODIN [Suspect]
  3. CLONAZEPAM [Concomitant]
  4. HYDROCODONE BITARTRATE [Concomitant]
  5. LEXAPRO [Concomitant]
  6. LIPITOR [Concomitant]

REACTIONS (8)
  - ABDOMINAL PAIN UPPER [None]
  - ANXIETY [None]
  - EPIGASTRIC DISCOMFORT [None]
  - FRUSTRATION [None]
  - INSOMNIA [None]
  - POOR QUALITY SLEEP [None]
  - VISUAL FIELD DEFECT [None]
  - WEIGHT DECREASED [None]
